FAERS Safety Report 12524642 (Version 1)
Quarter: 2016Q3

REPORT INFORMATION
  Report Type: Spontaneous
  Country: DE (occurrence: DE)
  Receive Date: 20160704
  Receipt Date: 20160704
  Transmission Date: 20161109
  Serious: Yes (Other)
  Sender: FDA-Public Use
  Company Number: DE-WATSON-2016-13977

PATIENT
  Age: 0 Day
  Sex: Female
  Weight: 3.25 kg

DRUGS (4)
  1. CITALOPRAM [Suspect]
     Active Substance: CITALOPRAM HYDROBROMIDE
     Dosage: 40 MG, DAILY; 0 -24 GW
     Route: 064
     Dates: start: 20150508
  2. ELONTRIL [Concomitant]
     Active Substance: BUPROPION HYDROCHLORIDE
     Indication: ATTENTION DEFICIT/HYPERACTIVITY DISORDER
     Dosage: UNK; EXPOSED IN 1ST TRIMESTER
     Route: 064
  3. CITALOPRAM [Suspect]
     Active Substance: CITALOPRAM HYDROBROMIDE
     Indication: ATTENTION DEFICIT/HYPERACTIVITY DISORDER
     Dosage: 20 MG, DAILY; IN WEEK 25 REDUCTION TO 20 MG/D
     Route: 064
     Dates: end: 20160131
  4. RISPERDAL [Suspect]
     Active Substance: RISPERIDONE
     Indication: ATTENTION DEFICIT/HYPERACTIVITY DISORDER
     Dosage: 0.5 MG, UNK
     Route: 064
     Dates: start: 20150508, end: 20160131

REACTIONS (4)
  - Foetal exposure during pregnancy [Unknown]
  - Respiratory disorder neonatal [Recovered/Resolved]
  - Caput succedaneum [Unknown]
  - Hypotonia neonatal [Recovered/Resolved]

NARRATIVE: CASE EVENT DATE: 20160131
